FAERS Safety Report 25996120 (Version 2)
Quarter: 2025Q4

REPORT INFORMATION
  Report Type: Spontaneous
  Country: EU (occurrence: EU)
  Receive Date: 20251104
  Receipt Date: 20251121
  Transmission Date: 20260117
  Serious: Yes (Life-Threatening, Hospitalization)
  Sender: MERCK SHARP & DOHME LLC
  Company Number: EU-009507513-2343660

PATIENT
  Age: 72 Year

DRUGS (4)
  1. SOTATERCEPT [Suspect]
     Active Substance: SOTATERCEPT
     Indication: Pulmonary arterial hypertension
     Dosage: 0.7 MG/KG; ONE INJECTION/3 WEEKS
     Dates: start: 20250407
  2. SOTATERCEPT [Suspect]
     Active Substance: SOTATERCEPT
  3. SOTATERCEPT [Suspect]
     Active Substance: SOTATERCEPT
  4. SOTATERCEPT [Suspect]
     Active Substance: SOTATERCEPT

REACTIONS (2)
  - Pericardial effusion [Unknown]
  - Cardiac failure [Unknown]

NARRATIVE: CASE EVENT DATE: 20251010
